FAERS Safety Report 9313122 (Version 2)
Quarter: 2013Q2

REPORT INFORMATION
  Report Type: Other
  Country: BR (occurrence: BR)
  Receive Date: 20130528
  Receipt Date: 20130624
  Transmission Date: 20140414
  Serious: No
  Sender: FDA-Public Use
  Company Number: PHHY2013BR052785

PATIENT
  Sex: Male

DRUGS (9)
  1. TEGRETOL CR [Suspect]
     Indication: PAIN
     Dosage: 2 DF,A DAY
     Route: 048
  2. TEGRETOL CR [Suspect]
     Indication: OFF LABEL USE
  3. LOTAR [Concomitant]
  4. SIMVASTATIN [Concomitant]
  5. METFORMIN [Concomitant]
  6. CLOPIDOGREL [Concomitant]
  7. SELOZOK [Concomitant]
  8. CARBAMAZEPINE [Concomitant]
  9. TEGRETOL [Concomitant]
     Dosage: UNK UKN, UNK

REACTIONS (1)
  - No adverse event [None]
